FAERS Safety Report 6629823-5 (Version None)
Quarter: 2010Q1

REPORT INFORMATION
  Report Type: 
  Country: None (occurrence: None)
  Receive Date: 20100311
  Receipt Date: 20090701
  Transmission Date: 20100710
  Serious: No
  Sender: FDA-Public Use
  Company Number: US-BIOGENIDEC-2009BI020367

PATIENT
  Sex: Male

DRUGS (2)
  1. AVONEX [Suspect]
     Indication: MULTIPLE SCLEROSIS
     Route: 030
     Dates: end: 20081219
  2. AVONEX [Suspect]
     Route: 030
     Dates: end: 20090101

REACTIONS (2)
  - BACK PAIN [None]
  - GAIT DISTURBANCE [None]
